FAERS Safety Report 4463556-9 (Version None)
Quarter: 2004Q3

REPORT INFORMATION
  Report Type: 
  Country: None (occurrence: None)
  Receive Date: 20040928
  Receipt Date: 20040913
  Transmission Date: 20050211
  Serious: No
  Sender: FDA-Public Use
  Company Number: B0345211A

PATIENT
  Age: 54 Year
  Sex: Male

DRUGS (4)
  1. RETROVIR [Suspect]
     Indication: HIV INFECTION
     Dates: start: 20020601
  2. . [Concomitant]
  3. EPIVIR [Suspect]
     Indication: HIV INFECTION
     Dates: start: 20020601
  4. ZIAGEN [Suspect]
     Indication: HIV INFECTION
     Dates: start: 20020601

REACTIONS (11)
  - DRUG TOLERANCE DECREASED [None]
  - GASTROINTESTINAL DISORDER [None]
  - HYPERTROPHY [None]
  - HYPOAESTHESIA [None]
  - LESION OF ULNAR NERVE [None]
  - OEDEMA [None]
  - RASH PAPULAR [None]
  - SKIN LESION [None]
  - SKIN ULCER [None]
  - TUBERCULOID LEPROSY [None]
  - VASCULITIS [None]
